FAERS Safety Report 25445421 (Version 2)
Quarter: 2025Q3

REPORT INFORMATION
  Report Type: Report from Study
  Country: IN (occurrence: IN)
  Receive Date: 20250617
  Receipt Date: 20250810
  Transmission Date: 20251021
  Serious: Yes (Other)
  Sender: ALEXION PHARMACEUTICALS
  Company Number: IN-AstraZeneca-CH-00889799A

PATIENT
  Age: 38 Year
  Sex: Male
  Weight: 83 kg

DRUGS (1)
  1. IMFINZI [Suspect]
     Active Substance: DURVALUMAB
     Dosage: 1500 MILLIGRAM, Q3W

REACTIONS (12)
  - Weight fluctuation [Unknown]
  - Decreased appetite [Unknown]
  - Asthenia [Unknown]
  - Constipation [Unknown]
  - Dyspnoea [Unknown]
  - Gait inability [Unknown]
  - Hepatic pain [Unknown]
  - Hypersomnia [Unknown]
  - Memory impairment [Unknown]
  - Anxiety [Unknown]
  - Hepatitis B [Unknown]
  - Routine health maintenance [Unknown]

NARRATIVE: CASE EVENT DATE: 20250612
